FAERS Safety Report 20615764 (Version 1)
Quarter: 2022Q1

REPORT INFORMATION
  Report Type: Spontaneous
  Country: GB (occurrence: GB)
  Receive Date: 20220321
  Receipt Date: 20220321
  Transmission Date: 20220424
  Serious: Yes (Hospitalization)
  Sender: FDA-Public Use
  Company Number: None

PATIENT
  Age: 68 Year
  Sex: Female

DRUGS (13)
  1. LANSOPRAZOLE [Suspect]
     Active Substance: LANSOPRAZOLE
     Indication: Product used for unknown indication
     Dosage: 1 DOSAGE FORM, AM (ONE TO BE TAKEN EACH MORNING)
  2. METFORMIN [Concomitant]
     Active Substance: METFORMIN HYDROCHLORIDE
     Dosage: UNK
  3. CANDESARTAN [Concomitant]
     Active Substance: CANDESARTAN
     Dosage: UNK, QD (ONE TO BE TAKEN EACH DAY)
     Dates: start: 20220104
  4. RAMIPRIL [Concomitant]
     Active Substance: RAMIPRIL
     Dosage: UNK
  5. CALCIUM CARBONATE\CHOLECALCIFEROL [Concomitant]
     Active Substance: CALCIUM CARBONATE\CHOLECALCIFEROL
     Dosage: 750MG/200UNIT CAPLETS (KYOWA KIRIN LTD) ONE TO BE TAKEN TWICE A DAY
     Dates: start: 20211229
  6. GABAPENTIN [Concomitant]
     Active Substance: GABAPENTIN
     Dosage: 2 DOSAGE FORM, TID (TAKE TWO CAPSULES THREE TIMES DAILY)
  7. PREGABALIN [Concomitant]
     Active Substance: PREGABALIN
     Dosage: UNK
  8. MESALAMINE [Concomitant]
     Active Substance: MESALAMINE
     Dosage: INSERT TWO METERED APPLICATIONS INTO THE RECTUM EACH DAY
  9. MESALAMINE [Concomitant]
     Active Substance: MESALAMINE
     Dosage: 4 DOSAGE FORM, BID (FOUR TO BE TAKEN TWICE A DAY)
  10. METFORMIN [Concomitant]
     Active Substance: METFORMIN HYDROCHLORIDE
     Dosage: 2 DOSAGE FORM, BID (TWO TO BE TAKEN TWICE A DAY)
  11. SIMVASTATIN [Concomitant]
     Active Substance: SIMVASTATIN
     Dosage: 1 DOSAGE FORM, HS (ONE TO BE TAKEN AT NIGHT - STOPPED)
  12. UMECLIDINIUM BROMIDE [Concomitant]
     Active Substance: UMECLIDINIUM BROMIDE
     Dosage: 65MICROGRAMS/DOSE DRY POWDER INHALER ONE DOSE TO BE INHALED EACH DAY
  13. VILANTEROL [Concomitant]
     Active Substance: VILANTEROL
     Dosage: 22MICROGRAMS/DOSE DRY POWDER INHALER ONE DOSE TO BE INHALED EACH DAY

REACTIONS (1)
  - Electrolyte imbalance [Recovered/Resolved]
